FAERS Safety Report 7972047-X (Version None)
Quarter: 2011Q4

REPORT INFORMATION
  Report Type: 
  Country: None (occurrence: None)
  Receive Date: 20111212
  Receipt Date: 20111130
  Transmission Date: 20120403
  Serious: No
  Sender: FDA-Public Use
  Company Number: US-ELI_LILLY_AND_COMPANY-US201110007157

PATIENT
  Sex: Female
  Weight: 65.306 kg

DRUGS (8)
  1. OXYCODONE HCL [Concomitant]
  2. CALCIUM [Concomitant]
  3. OMEPRAZOLE [Concomitant]
  4. FOLIC ACID [Concomitant]
  5. IRON [Concomitant]
  6. FORTEO [Suspect]
     Indication: OSTEOPOROSIS
     Dosage: 20 UG, QD
     Route: 058
  7. VITAMIN D [Concomitant]
  8. FERROUS SULFATE TAB [Concomitant]

REACTIONS (3)
  - TRANSFUSION [None]
  - DRUG DOSE OMISSION [None]
  - INSOMNIA [None]
